FAERS Safety Report 9730054 (Version 1)
Quarter: 2013Q4

REPORT INFORMATION
  Report Type: Report from Study
  Country: US (occurrence: US)
  Receive Date: 20131204
  Receipt Date: 20131204
  Transmission Date: 20140711
  Serious: Yes (Hospitalization)
  Sender: FDA-Public Use
  Company Number: US-MERCK-1312USA001188

PATIENT
  Age: 43 Year
  Sex: Male
  Weight: 91.2 kg

DRUGS (3)
  1. VORINOSTAT [Suspect]
     Indication: ACUTE MYELOID LEUKAEMIA
     Dosage: 500 MG, TID CYCLE=28 DAYS
     Route: 048
     Dates: start: 20131101, end: 20131103
  2. CYTARABINE [Suspect]
     Indication: ACUTE MYELOID LEUKAEMIA
     Dosage: 1500 MG CONTINUOUS INFUSION CYCLE=28DAYS
     Route: 042
     Dates: start: 20131104, end: 20131107
  3. IDARUBICIN [Suspect]
     Indication: ACUTE MYELOID LEUKAEMIA
     Dosage: 8 MG/M2, QD OVER 15 MINUTES CYCLE=28DAYS
     Route: 042
     Dates: start: 20131104, end: 20131106

REACTIONS (1)
  - Multi-organ failure [Not Recovered/Not Resolved]
